FAERS Safety Report 13656082 (Version 27)
Quarter: 2022Q3

REPORT INFORMATION
  Report Type: Spontaneous
  Country: JP (occurrence: JP)
  Receive Date: 20170615
  Receipt Date: 20220930
  Transmission Date: 20221026
  Serious: Yes (Death, Life-Threatening, Hospitalization, Other)
  Sender: FDA-Public Use
  Company Number: JP-MSD-1706JPN000733J

PATIENT
  Age: 56 Year
  Sex: Female
  Weight: 62 kg

DRUGS (9)
  1. KEYTRUDA [Suspect]
     Active Substance: PEMBROLIZUMAB
     Indication: Lung adenocarcinoma
     Dosage: 200 MG, Q3W
     Route: 041
     Dates: start: 20170510, end: 20170531
  2. LANSOPRAZOLE [Concomitant]
     Active Substance: LANSOPRAZOLE
     Indication: Prophylaxis
     Dosage: 15.0 MG, QD
     Route: 048
     Dates: end: 20170606
  3. URSO [Concomitant]
     Active Substance: URSODIOL
     Dosage: 100 MG, TID
     Route: 048
  4. DEXTROMETHORPHAN HYDROBROMIDE [Concomitant]
     Active Substance: DEXTROMETHORPHAN HYDROBROMIDE
     Indication: Lung adenocarcinoma
     Dosage: 15 MG, TID
     Route: 048
  5. MAGNESIUM OXIDE [Concomitant]
     Active Substance: MAGNESIUM OXIDE
     Indication: Prophylaxis
     Dosage: 250 MG, TID
     Route: 048
  6. ISOSORBIDE [Concomitant]
     Active Substance: ISOSORBIDE
     Dosage: 30 ML, TID
     Route: 048
  7. REFLEX [Concomitant]
     Active Substance: MIRTAZAPINE
     Dosage: 15 MG, QD
     Route: 048
  8. BROTIZOLAM [Concomitant]
     Active Substance: BROTIZOLAM
     Dosage: 0.25 MG, QD
     Route: 048
  9. HERBALS [Concomitant]
     Active Substance: HERBALS
     Indication: Lung adenocarcinoma
     Dosage: 2.0 ML, TID
     Route: 048
     Dates: start: 20170530

REACTIONS (6)
  - Lymphangiosis carcinomatosa [Fatal]
  - Hypoxia [Recovering/Resolving]
  - Respiratory failure [Fatal]
  - Malignant neoplasm progression [Fatal]
  - Dyspnoea [Not Recovered/Not Resolved]
  - Interstitial lung disease [Fatal]

NARRATIVE: CASE EVENT DATE: 20170101
